FAERS Safety Report 8398501-7 (Version None)
Quarter: 2012Q2

REPORT INFORMATION
  Report Type: 
  Country: None (occurrence: None)
  Receive Date: 20120531
  Receipt Date: 20120119
  Transmission Date: 20120825
  Serious: Yes (Life-Threatening, Hospitalization, Other)
  Sender: FDA-Public Use
  Company Number: US-ROCHE-1032397

PATIENT
  Age: 40 Year
  Sex: Female
  Weight: 63.3 kg

DRUGS (3)
  1. TOPOTECAN HYDROCHLORIDE [Suspect]
     Indication: CERVIX CARCINOMA
     Dosage: TOTAL DOSE 3.6 MG, LAST ADMINISTERED DATE 11 NOVEMBER 2011
     Route: 042
     Dates: start: 20110728
  2. AVASTIN [Suspect]
     Indication: CERVIX CARCINOMA
     Dosage: TOTAL DOSE 914 MG, LAST ADMINISTERED DATE 09 NOVEMBER 2011
     Route: 042
     Dates: start: 20110728
  3. PACLITAXEL [Suspect]
     Indication: CERVIX CARCINOMA
     Dosage: TOTAL DOSE 285 MG, LAST ADMINISTERED DATE 09 NOVEMBER 2011
     Route: 042
     Dates: start: 20110728

REACTIONS (4)
  - NEUTROPHIL COUNT DECREASED [None]
  - LYMPHOCYTE COUNT DECREASED [None]
  - WHITE BLOOD CELL COUNT DECREASED [None]
  - FEBRILE NEUTROPENIA [None]
